FAERS Safety Report 4379987-1 (Version None)
Quarter: 2004Q2

REPORT INFORMATION
  Report Type: 
  Country: None (occurrence: None)
  Receive Date: 20040614
  Receipt Date: 20040526
  Transmission Date: 20050107
  Serious: Yes (Other)
  Sender: FDA-Public Use
  Company Number: 2004IM000671

PATIENT
  Sex: Male

DRUGS (2)
  1. ADVAFERON (A643_INTERFERON ALFACON-1) [Suspect]
     Indication: HEPATITIS C
     Dosage: QD; SUBCUTANEOUS
     Route: 058
  2. INTERFERON BETA (INTERFERON BETA) [Suspect]
     Dosage: 3 MU; BID; INTRAVENOUS
     Route: 042

REACTIONS (1)
  - BREAST CANCER MALE [None]
